FAERS Safety Report 24464189 (Version 1)
Quarter: 2024Q4

REPORT INFORMATION
  Report Type: Report from Study
  Country: US (occurrence: US)
  Receive Date: 20241018
  Receipt Date: 20241018
  Transmission Date: 20250115
  Serious: No
  Sender: ROCHE
  Company Number: US-ROCHE-3486546

PATIENT
  Age: 75 Year
  Sex: Female

DRUGS (9)
  1. XOLAIR [Suspect]
     Active Substance: OMALIZUMAB
     Indication: Chronic spontaneous urticaria
     Route: 058
  2. XOLAIR [Suspect]
     Active Substance: OMALIZUMAB
     Indication: Retinal vein occlusion
  3. XOLAIR [Suspect]
     Active Substance: OMALIZUMAB
     Indication: Macular oedema
  4. XOLAIR [Suspect]
     Active Substance: OMALIZUMAB
     Indication: Urticaria
  5. CLOBETASOL [Concomitant]
     Active Substance: CLOBETASOL
     Dosage: APPLY THE AFFECTED AREA BELOW THE NECK 2- 3 WEEKS, TAKE ONE WEEK BREAK AND REPEAT FOR MAINTENANCE
     Route: 061
     Dates: start: 20231005
  6. HYDROCORTISONE [Concomitant]
     Active Substance: HYDROCORTISONE
     Dosage: AS PER NEEDED APPLY AFFECTED AREA ON THE FACE.
     Route: 061
     Dates: start: 20231005
  7. TRIAMCINOLONE ACETONIDE [Concomitant]
     Active Substance: TRIAMCINOLONE ACETONIDE
     Dosage: 1PPLY AFFECTED AREA 2 WEEKS THEN TAKE 1 WEEK OFF AND REPEAT FOR MAINTAIN AVOID USING ON FACE UNDERAR
     Route: 061
     Dates: start: 20230928
  8. PREDNISONE [Concomitant]
     Active Substance: PREDNISONE
     Dosage: TAKE 3 TABLETS BY MOUTH DAILY FOR 5 DAYS.
     Route: 048
     Dates: start: 20230928
  9. PREDNISOLONE [Concomitant]
     Active Substance: PREDNISOLONE

REACTIONS (2)
  - Aphasia [Unknown]
  - Off label use [Unknown]
